FAERS Safety Report 8845096 (Version 1)
Quarter: 2012Q4

REPORT INFORMATION
  Report Type: Spontaneous
  Country: US (occurrence: None)
  Receive Date: 20121002
  Receipt Date: 20121002
  Transmission Date: 20130627
  Serious: Yes (Hospitalization)
  Sender: FDA-Public Use
  Company Number: RB-36948-2012

PATIENT
  Age: 54 Year
  Sex: Female

DRUGS (5)
  1. SUBOXONE [Suspect]
     Indication: DRUG DEPENDENCE
     Route: 060
     Dates: start: 2008, end: 2010
  2. SUBOXONE [Suspect]
     Indication: DRUG DEPENDENCE
     Route: 060
     Dates: start: 2010
  3. SUBOXONE [Suspect]
     Indication: DRUG DEPENDENCE
     Route: 060
  4. REMERON [Concomitant]
  5. LEXAPRO [Concomitant]

REACTIONS (5)
  - Wrong technique in drug usage process [None]
  - Drug withdrawal syndrome [None]
  - Nausea [None]
  - Chills [None]
  - Asthenia [None]
